FAERS Safety Report 9939598 (Version 1)
Quarter: 2014Q1

REPORT INFORMATION
  Report Type: Report from Study
  Country: US (occurrence: US)
  Receive Date: 20140303
  Receipt Date: 20140303
  Transmission Date: 20141002
  Serious: No
  Sender: FDA-Public Use
  Company Number: US-ABBVIE-13P-163-1032439-00

PATIENT
  Age: 43 Year
  Sex: Female

DRUGS (3)
  1. HUMIRA [Suspect]
     Indication: CROHN^S DISEASE
     Dates: start: 20121207, end: 20121207
  2. HUMIRA [Suspect]
     Dates: start: 20121221, end: 20121221
  3. HUMIRA [Suspect]
     Dates: start: 20130104

REACTIONS (1)
  - Incorrect product storage [Unknown]
